FAERS Safety Report 15811388 (Version 2)
Quarter: 2019Q1

REPORT INFORMATION
  Report Type: Report from Study
  Country: US (occurrence: US)
  Receive Date: 20190111
  Receipt Date: 20190207
  Transmission Date: 20190417
  Serious: Yes (Other)
  Sender: FDA-Public Use
  Company Number: US-EMD SERONO-9063634

PATIENT
  Age: 36 Year
  Sex: Male

DRUGS (2)
  1. CANNABIDIOL [Concomitant]
     Active Substance: CANNABIDIOL
     Indication: MULTIPLE SCLEROSIS
     Dosage: CBD OIL
  2. REBIF [Suspect]
     Active Substance: INTERFERON BETA-1A
     Indication: MULTIPLE SCLEROSIS
     Route: 058
     Dates: start: 20170822

REACTIONS (3)
  - Gastrointestinal disorder [Unknown]
  - Gastric ulcer [Unknown]
  - Blood triglycerides increased [Unknown]

NARRATIVE: CASE EVENT DATE: 20180928
